FAERS Safety Report 9444073 (Version 2)
Quarter: 2013Q3

REPORT INFORMATION
  Report Type: Spontaneous
  Country: FR (occurrence: FR)
  Receive Date: 20130807
  Receipt Date: 20130819
  Transmission Date: 20140515
  Serious: Yes (Other)
  Sender: FDA-Public Use
  Company Number: FR-RANBAXY-2013RR-71896

PATIENT
  Age: 39 Year
  Sex: Male

DRUGS (7)
  1. RISPERIDONE [Suspect]
     Indication: BIPOLAR DISORDER
     Dosage: 1 MG/DAY
     Route: 065
  2. RISPERIDONE [Suspect]
     Dosage: 2 MG/DAY
     Route: 065
  3. RISPERIDONE [Suspect]
     Dosage: 4 MG/DAY
     Route: 065
  4. RISPERIDONE [Suspect]
     Indication: BIPOLAR DISORDER
     Dosage: 6 MG/DAY
     Route: 065
  5. BACLOFEN [Suspect]
     Indication: ALCOHOLISM
     Dosage: 20 MG/DAY
     Route: 065
  6. BACLOFEN [Suspect]
     Dosage: GRADUALLY INCREASED TO 180 MG/DAY, HIGH DOSE
     Route: 065
  7. BACLOFEN [Suspect]
     Indication: ALCOHOLISM
     Dosage: GRADUALLY INCREASED TO 240 MG/DAY, HIGH DOSE
     Route: 065

REACTIONS (3)
  - Blood triglycerides increased [Recovered/Resolved]
  - Hyponatraemia [Unknown]
  - Weight increased [Unknown]
